FAERS Safety Report 20401900 (Version 2)
Quarter: 2022Q1

REPORT INFORMATION
  Report Type: Spontaneous
  Country: US (occurrence: US)
  Receive Date: 20220131
  Receipt Date: 20220201
  Transmission Date: 20220423
  Serious: No
  Sender: FDA-Public Use
  Company Number: US-ABBVIE-21K-163-4121630-00

PATIENT
  Sex: Female
  Weight: 102.15 kg

DRUGS (22)
  1. HUMIRA [Suspect]
     Active Substance: ADALIMUMAB
     Indication: Psoriasis
     Route: 058
     Dates: start: 201810, end: 201901
  2. METOPROLOL [Concomitant]
     Active Substance: METOPROLOL
     Indication: Hypertension
  3. MELOXICAM [Concomitant]
     Active Substance: MELOXICAM
     Indication: Arthritis
  4. VITAMIN D [Concomitant]
     Active Substance: VITAMIN D NOS
     Indication: Supplementation therapy
  5. CETIRIZINE [Concomitant]
     Active Substance: CETIRIZINE HYDROCHLORIDE
     Indication: Hypersensitivity
  6. LORATADINE [Concomitant]
     Active Substance: LORATADINE
     Indication: Hypersensitivity
  7. ESTRADIOL [Concomitant]
     Active Substance: ESTRADIOL
     Indication: Supplementation therapy
  8. ZYRTEC [Concomitant]
     Active Substance: CETIRIZINE HYDROCHLORIDE
     Indication: Hypersensitivity
  9. AMITRIPTYLINE [Concomitant]
     Active Substance: AMITRIPTYLINE
     Indication: Affective disorder
  10. DULOXETINE [Concomitant]
     Active Substance: DULOXETINE
     Indication: Depression
  11. SIMVASTATIN [Concomitant]
     Active Substance: SIMVASTATIN
     Indication: Blood cholesterol increased
  12. VITAMINS [Concomitant]
     Active Substance: VITAMINS
     Indication: Vitamin supplementation
  13. METFORMIN [Concomitant]
     Active Substance: METFORMIN HYDROCHLORIDE
     Indication: Diabetes mellitus
  14. KLOR-CON [Concomitant]
     Active Substance: POTASSIUM CHLORIDE
     Indication: Mineral supplementation
  15. VITAMIN B3 [Concomitant]
     Active Substance: NIACIN
     Indication: Product used for unknown indication
  16. GABAPENTIN [Concomitant]
     Active Substance: GABAPENTIN
     Indication: Neuropathy peripheral
  17. ASPIRIN [Concomitant]
     Active Substance: ASPIRIN
     Indication: Product used for unknown indication
  18. STRESS B COMPLEX [Concomitant]
     Indication: Product used for unknown indication
  19. ALEVE [Concomitant]
     Active Substance: NAPROXEN SODIUM
     Indication: Pelvic pain
  20. ALEVE [Concomitant]
     Active Substance: NAPROXEN SODIUM
     Indication: Neck pain
  21. TYLENOL [Concomitant]
     Active Substance: ACETAMINOPHEN
     Indication: Pelvic pain
  22. TYLENOL [Concomitant]
     Active Substance: ACETAMINOPHEN
     Indication: Neck pain

REACTIONS (6)
  - Posture abnormal [Recovering/Resolving]
  - Feeling hot [Recovering/Resolving]
  - Dysuria [Recovering/Resolving]
  - Scar [Recovering/Resolving]
  - Drug ineffective [Recovered/Resolved]
  - Psoriasis [Recovered/Resolved]

NARRATIVE: CASE EVENT DATE: 20180101
